FAERS Safety Report 23329804 (Version 1)
Quarter: 2023Q4

REPORT INFORMATION
  Report Type: Spontaneous
  Country: US (occurrence: US)
  Receive Date: 20231222
  Receipt Date: 20231222
  Transmission Date: 20240110
  Serious: Yes (Other)
  Sender: FDA-Public Use
  Company Number: US-009507513-2312USA006562

PATIENT
  Age: 74 Year
  Sex: Female

DRUGS (1)
  1. JANUMET XR [Suspect]
     Active Substance: METFORMIN HYDROCHLORIDE\SITAGLIPTIN PHOSPHATE
     Indication: Type 2 diabetes mellitus
     Dosage: 1 TABLET (50/500 MG), STRENGTH: 50/500 MG
     Route: 048
     Dates: start: 20231214

REACTIONS (6)
  - Choking [Not Recovered/Not Resolved]
  - Fear [Not Recovered/Not Resolved]
  - Dysphagia [Not Recovered/Not Resolved]
  - Product use complaint [Unknown]
  - Inappropriate schedule of product administration [Unknown]
  - Incorrect dose administered [Unknown]

NARRATIVE: CASE EVENT DATE: 20231214
